FAERS Safety Report 4906789-7 (Version None)
Quarter: 2006Q1

REPORT INFORMATION
  Report Type: 
  Country: None (occurrence: None)
  Receive Date: 20060207
  Receipt Date: 20060125
  Transmission Date: 20060701
  Serious: Yes (Other)
  Sender: FDA-Public Use
  Company Number: FR200601004369

PATIENT
  Age: 64 Year
  Sex: Male

DRUGS (5)
  1. ZYPREXA [Suspect]
     Indication: BIPOLAR DISORDER
     Dosage: 15 MG, DAILY (1/D), ORAL; 10 MG, DAILY (1/D), ORAL
     Route: 048
     Dates: start: 20030101
  2. ZYPREXA [Suspect]
     Indication: BIPOLAR DISORDER
     Dosage: 15 MG, DAILY (1/D), ORAL; 10 MG, DAILY (1/D), ORAL
     Route: 048
     Dates: start: 20051101
  3. LITHIUM CARBONATE [Concomitant]
  4. VALIUM [Concomitant]
  5. AKINETON [Concomitant]

REACTIONS (3)
  - CREATININE RENAL CLEARANCE DECREASED [None]
  - LYMPHOPENIA [None]
  - NEUTROPENIA [None]
